FAERS Safety Report 19574587 (Version 2)
Quarter: 2021Q3

REPORT INFORMATION
  Report Type: Spontaneous
  Country: DE (occurrence: DE)
  Receive Date: 20210719
  Receipt Date: 20210728
  Transmission Date: 20211014
  Serious: Yes (Hospitalization, Other)
  Sender: FDA-Public Use
  Company Number: DE-TEVA-2021-DE-1932703

PATIENT
  Age: 78 Year
  Sex: Male

DRUGS (5)
  1. ASS 100 [Concomitant]
     Active Substance: ASPIRIN
     Indication: CEREBROVASCULAR ACCIDENT
  2. CANDESARTAN. [Concomitant]
     Active Substance: CANDESARTAN
     Indication: BLOOD PRESSURE INCREASED
     Dosage: 16 MILLIGRAM DAILY;  IN THE MORNING FOR YEARS
  3. ASS 100 [Concomitant]
     Active Substance: ASPIRIN
     Indication: ANTICOAGULANT THERAPY
  4. EZETIMIB?RATIOPHARM 10 MG TABLETTEN [Suspect]
     Active Substance: EZETIMIBE
     Indication: BLOOD CHOLESTEROL INCREASED
     Dosage: 10 MG
     Route: 065
     Dates: start: 20190729, end: 202101
  5. ASS 100 [Concomitant]
     Active Substance: ASPIRIN
     Indication: MYOCARDIAL INFARCTION
     Dosage: FOR YEARS

REACTIONS (5)
  - Abdominal infection [Unknown]
  - Pancreatic carcinoma [Unknown]
  - Abdominal pain [Unknown]
  - Abdominal adhesions [Unknown]
  - Lipase increased [Recovered/Resolved]

NARRATIVE: CASE EVENT DATE: 202011
